FAERS Safety Report 9761270 (Version 1)
Quarter: 2013Q4

REPORT INFORMATION
  Report Type: Spontaneous
  Country: US (occurrence: US)
  Receive Date: 20131216
  Receipt Date: 20131216
  Transmission Date: 20140711
  Serious: No
  Sender: FDA-Public Use
  Company Number: US-FOUGERA-2013FO000208

PATIENT
  Age: 71 Year
  Sex: Male

DRUGS (3)
  1. SOLARAZE [Suspect]
     Indication: ACTINIC KERATOSIS
     Route: 061
     Dates: start: 201307, end: 201307
  2. SOLARAZE [Suspect]
     Indication: PRECANCEROUS SKIN LESION
  3. DIOVAN [Concomitant]
     Indication: HYPERTENSION
     Route: 048

REACTIONS (5)
  - Application site erythema [Recovering/Resolving]
  - Application site swelling [Recovering/Resolving]
  - Eye swelling [Recovering/Resolving]
  - Application site pain [Recovering/Resolving]
  - Dry skin [Recovering/Resolving]
